FAERS Safety Report 21151660 (Version 3)
Quarter: 2022Q3

REPORT INFORMATION
  Report Type: Report from Study
  Country: US (occurrence: US)
  Receive Date: 20220730
  Receipt Date: 20220909
  Transmission Date: 20221027
  Serious: Yes (Other)
  Sender: FDA-Public Use
  Company Number: US-NOVARTISPH-NVSC2022US171303

PATIENT
  Sex: Female

DRUGS (1)
  1. MAYZENT [Suspect]
     Active Substance: SIPONIMOD
     Indication: Product used for unknown indication
     Dosage: UNK
     Route: 065

REACTIONS (6)
  - Internal haemorrhage [Unknown]
  - Intervertebral disc disorder [Unknown]
  - Red blood cell count decreased [Unknown]
  - Nasal vestibulitis [Unknown]
  - Infection [Unknown]
  - Tooth abscess [Unknown]
